FAERS Safety Report 8505613-3 (Version None)
Quarter: 2012Q3

REPORT INFORMATION
  Report Type: 
  Country: None (occurrence: None)
  Receive Date: 20120712
  Receipt Date: 20120709
  Transmission Date: 20120928
  Serious: Yes (Hospitalization, Other)
  Sender: FDA-Public Use
  Company Number: PT-PFIZER INC-2012163789

PATIENT
  Age: 8 Year
  Sex: Female

DRUGS (5)
  1. ACYCLOVIR [Concomitant]
     Indication: VARICELLA
     Route: 048
  2. FORMOTEROL [Concomitant]
     Indication: ASTHMA
  3. IBUPROFEN [Suspect]
     Indication: PYREXIA
  4. BUDESONIDE [Suspect]
     Indication: ASTHMA
  5. ACETAMINOPHEN [Concomitant]
     Indication: PYREXIA

REACTIONS (6)
  - HYPERTENSION [None]
  - NECROTISING FASCIITIS [None]
  - RENAL FAILURE ACUTE [None]
  - THROMBOSIS [None]
  - TOXIC SHOCK SYNDROME STREPTOCOCCAL [None]
  - PNEUMONIA [None]
